FAERS Safety Report 25423256 (Version 1)
Quarter: 2025Q2

REPORT INFORMATION
  Report Type: Spontaneous
  Country: US (occurrence: US)
  Receive Date: 20250611
  Receipt Date: 20250611
  Transmission Date: 20250717
  Serious: No
  Sender: PIERRE FABRE MEDICAMENT
  Company Number: US-PFM-2024-06006

PATIENT
  Age: 22 Year
  Sex: Female

DRUGS (7)
  1. PROPRANOLOL [Suspect]
     Active Substance: PROPRANOLOL HYDROCHLORIDE
     Indication: Tachycardia foetal
     Route: 065
  2. PROPRANOLOL [Suspect]
     Active Substance: PROPRANOLOL HYDROCHLORIDE
     Indication: Pericardial effusion
  3. PROPRANOLOL [Suspect]
     Active Substance: PROPRANOLOL HYDROCHLORIDE
     Indication: Off label use
  4. MEXILETINE [Concomitant]
     Active Substance: MEXILETINE
     Indication: Tachycardia foetal
     Route: 065
  5. MEXILETINE [Concomitant]
     Active Substance: MEXILETINE
     Indication: Pericardial effusion
  6. MAGNESIUM [Concomitant]
     Active Substance: MAGNESIUM
     Indication: Tachycardia foetal
     Route: 065
  7. MAGNESIUM [Concomitant]
     Active Substance: MAGNESIUM
     Indication: Pericardial effusion

REACTIONS (4)
  - Maternal exposure during pregnancy [Unknown]
  - Product use in unapproved indication [Unknown]
  - Product use issue [Unknown]
  - Off label use [Unknown]
